FAERS Safety Report 6593893-3 (Version None)
Quarter: 2010Q1

REPORT INFORMATION
  Report Type: 
  Country: None (occurrence: None)
  Receive Date: 20100222
  Receipt Date: 20100208
  Transmission Date: 20100710
  Serious: Yes (Other)
  Sender: FDA-Public Use
  Company Number: PHEH2008US02320

PATIENT
  Sex: Female

DRUGS (41)
  1. ZOMETA [Suspect]
     Dosage: UNK
     Dates: end: 20041201
  2. METHADONE [Concomitant]
  3. ROCEPHIN [Concomitant]
  4. PROZAC [Concomitant]
  5. PROCRIT                            /00909301/ [Concomitant]
  6. MEDROL [Concomitant]
  7. DYAZIDE [Concomitant]
  8. TAMOXIFEN CITRATE [Concomitant]
  9. GABITRIL [Concomitant]
  10. OXYCONTIN [Concomitant]
  11. FOLIC ACID [Concomitant]
  12. PREDNISONE TAB [Concomitant]
  13. DURAGESIC-100 [Concomitant]
  14. HYDROMORPHONE HYDROCHLORIDE [Concomitant]
  15. NEXIUM [Concomitant]
  16. PLETAL [Concomitant]
     Dosage: UNK
  17. NEURONTIN [Concomitant]
     Dosage: UNK
  18. LAMICTAL [Concomitant]
     Dosage: UNK
  19. CYMBALTA [Concomitant]
     Dosage: UNK
  20. DITROPAN [Concomitant]
     Dosage: 15 MG, QD
  21. BOTOX [Concomitant]
     Dosage: UNK
     Route: 043
     Dates: start: 20090407
  22. URECHOLINE [Concomitant]
     Dosage: UNK
  23. KADIAN ^KNOLL^ [Concomitant]
  24. DITROPAN [Concomitant]
  25. PENICILLIN ^GRUNENTHAL^ [Concomitant]
  26. CIPROFLOXACIN [Concomitant]
  27. AZITHROMYCIN [Concomitant]
  28. METRONIDAZOLE [Concomitant]
  29. ZETIA [Concomitant]
  30. TRAMADOL HCL [Concomitant]
  31. NAPROXEN [Concomitant]
  32. PREVIDENT [Concomitant]
  33. IPRATROPIUM [Concomitant]
  34. CEFADROXIL [Concomitant]
  35. NEOMYCIN [Concomitant]
  36. GABAPENTIN [Concomitant]
  37. TOBREX [Concomitant]
  38. CILOSTAZOL [Concomitant]
  39. NITROFURANTOIN [Concomitant]
  40. PLAVIX [Concomitant]
  41. DRONABINOL [Concomitant]

REACTIONS (35)
  - ANAEMIA [None]
  - ARTERIAL BYPASS OPERATION [None]
  - ARTERIOSCLEROSIS [None]
  - BONE DISORDER [None]
  - BONE FISTULA [None]
  - CELLULITIS [None]
  - CHOLECYSTECTOMY [None]
  - COLOSTOMY [None]
  - DEBRIDEMENT [None]
  - DEPRESSION [None]
  - ESCHERICHIA INFECTION [None]
  - EYE DISORDER [None]
  - GASTROOESOPHAGEAL REFLUX DISEASE [None]
  - GENERAL PHYSICAL CONDITION ABNORMAL [None]
  - HAEMATOMA [None]
  - HYPERTONIC BLADDER [None]
  - IMPAIRED HEALING [None]
  - INFECTION [None]
  - INTERMITTENT CLAUDICATION [None]
  - MENINGIOMA [None]
  - METASTASES TO BONE [None]
  - METASTASES TO LUNG [None]
  - METASTATIC NEOPLASM [None]
  - MUSCULAR WEAKNESS [None]
  - MYALGIA [None]
  - NEUROPATHY PERIPHERAL [None]
  - OSTEOMYELITIS [None]
  - OSTEONECROSIS [None]
  - PAIN [None]
  - PNEUMONIA [None]
  - SWELLING [None]
  - TOOTH EXTRACTION [None]
  - UTEROVAGINAL PROLAPSE [None]
  - WEIGHT DECREASED [None]
  - WOUND DECOMPOSITION [None]
